FAERS Safety Report 16667825 (Version 1)
Quarter: 2019Q3

REPORT INFORMATION
  Report Type: Spontaneous
  Country: IT (occurrence: IT)
  Receive Date: 20190805
  Receipt Date: 20190805
  Transmission Date: 20191004
  Serious: Yes (Death)
  Sender: FDA-Public Use
  Company Number: IT-MYLANLABS-2019M1072259

PATIENT
  Age: 48 Year
  Sex: Male

DRUGS (4)
  1. ACETYLSALICYLIC ACID [Interacting]
     Active Substance: ASPIRIN
     Indication: PRODUCT USED FOR UNKNOWN INDICATION
     Route: 065
  2. ALLOPURINOL. [Interacting]
     Active Substance: ALLOPURINOL
     Indication: PRODUCT USED FOR UNKNOWN INDICATION
     Route: 065
  3. LANSOPRAZOLE. [Suspect]
     Active Substance: LANSOPRAZOLE
     Indication: PRODUCT USED FOR UNKNOWN INDICATION
     Route: 065
  4. WARFARIN [Interacting]
     Active Substance: WARFARIN
     Indication: ISCHAEMIC CARDIOMYOPATHY
     Route: 048

REACTIONS (5)
  - Drug interaction [Fatal]
  - Epistaxis [Fatal]
  - Renal failure [Fatal]
  - Rhabdomyolysis [Fatal]
  - Thrombocytopenia [Fatal]
